FAERS Safety Report 19257648 (Version 1)
Quarter: 2021Q2

REPORT INFORMATION
  Report Type: Spontaneous
  Country: US (occurrence: US)
  Receive Date: 20210514
  Receipt Date: 20210514
  Transmission Date: 20210717
  Serious: No
  Sender: FDA-Public Use
  Company Number: US-SA-2021SA160091

PATIENT
  Age: 47 Year
  Sex: Female

DRUGS (2)
  1. KEVZARA [Suspect]
     Active Substance: SARILUMAB
     Dosage: UNK
     Dates: start: 20210503, end: 2021
  2. KEVZARA [Suspect]
     Active Substance: SARILUMAB
     Indication: IRIDOCYCLITIS
     Dosage: 200 MG, QOW
     Route: 058
     Dates: start: 20210417, end: 20210501

REACTIONS (7)
  - Injection site swelling [Unknown]
  - Rash [Unknown]
  - Paraesthesia oral [Unknown]
  - Product use in unapproved indication [Unknown]
  - Drug hypersensitivity [Unknown]
  - Hypoaesthesia oral [Unknown]
  - Urticaria [Unknown]

NARRATIVE: CASE EVENT DATE: 2021
